FAERS Safety Report 9746268 (Version 1)
Quarter: 2013Q4

REPORT INFORMATION
  Report Type: Spontaneous
  Country: US (occurrence: None)
  Receive Date: 20131209
  Receipt Date: 20131209
  Transmission Date: 20140711
  Serious: Yes (Death)
  Sender: FDA-Public Use
  Company Number: None

PATIENT
  Age: 21 Year
  Sex: Female
  Weight: 90.72 kg

DRUGS (1)
  1. ORTHO EVRA PATCH [Suspect]
     Indication: ORAL CONTRACEPTION
     Dosage: APPLIED TO A SURFACE, USUALLY THE SKIN
     Route: 062

REACTIONS (1)
  - Pulmonary embolism [None]
